FAERS Safety Report 9382199 (Version 3)
Quarter: 2013Q3

REPORT INFORMATION
  Report Type: Spontaneous
  Country: US (occurrence: US)
  Receive Date: 20130703
  Receipt Date: 20130724
  Transmission Date: 20140515
  Serious: Yes (Hospitalization, Other)
  Sender: FDA-Public Use
  Company Number: US-AMGEN-USASP2013046123

PATIENT
  Age: 37 Year
  Sex: Male
  Weight: 114.29 kg

DRUGS (5)
  1. ENBREL [Suspect]
     Indication: SPONDYLITIS
     Dosage: 50 MG, QWK
     Route: 058
     Dates: start: 20130613
  2. PREDNISONE [Concomitant]
     Indication: ARTHRITIS
     Dosage: 10 MG, QD
     Route: 048
     Dates: start: 20130313
  3. GABAPENTIN [Concomitant]
     Indication: PAIN
     Dosage: 300 MG, TID
     Route: 048
     Dates: start: 20130313
  4. ALEVE [Concomitant]
     Indication: PAIN
     Dosage: 220 MG, BID
     Route: 048
     Dates: start: 201208
  5. MULTIVITAMINS, PLAIN [Concomitant]
     Indication: SUPPLEMENTATION THERAPY
     Dosage: ONE TAB DAILY
     Route: 048
     Dates: start: 201306

REACTIONS (2)
  - Head injury [Recovered/Resolved]
  - Paraesthesia [Not Recovered/Not Resolved]
